FAERS Safety Report 6551322-X (Version None)
Quarter: 2010Q1

REPORT INFORMATION
  Report Type: 
  Country: None (occurrence: None)
  Receive Date: 20100120
  Receipt Date: 20100112
  Transmission Date: 20100710
  Serious: Yes (Other)
  Sender: FDA-Public Use
  Company Number: 2010SP002321

PATIENT
  Age: 66 Year
  Sex: Male
  Weight: 52 kg

DRUGS (8)
  1. PEG-INTRON [Suspect]
     Indication: HEPATITIS C
     Dosage: 80 MCG;QW;SC
     Route: 058
     Dates: start: 20100106
  2. REBETOL [Suspect]
     Indication: HEPATITIS C
     Dosage: 600 MG;QD;PO
     Route: 048
     Dates: start: 20100106
  3. BASEN OD [Concomitant]
  4. ACTOS [Concomitant]
  5. AMARYL [Concomitant]
  6. MEXITIL [Concomitant]
  7. FERROMIA [Concomitant]
  8. OMEPRAL [Concomitant]

REACTIONS (1)
  - HYPOGLYCAEMIA [None]
